FAERS Safety Report 9384902 (Version 2)
Quarter: 2013Q3

REPORT INFORMATION
  Report Type: Spontaneous
  Country: US (occurrence: US)
  Receive Date: 20130705
  Receipt Date: 20130802
  Transmission Date: 20140515
  Serious: No
  Sender: FDA-Public Use
  Company Number: US-PFIZER INC-2013198658

PATIENT
  Age: 52 Year
  Sex: Female
  Weight: 68.03 kg

DRUGS (6)
  1. LATANOPROST [Suspect]
     Indication: GLAUCOMA
     Dosage: UNK
     Dates: start: 201105
  2. LATANOPROST [Suspect]
     Dosage: 1 GTT, 1X/DAY
     Route: 047
     Dates: start: 201306, end: 20130619
  3. XALATAN [Suspect]
     Indication: OCULAR HYPERAEMIA
     Dosage: 1 GTT, QHS OU
     Route: 047
     Dates: start: 20130701, end: 20130708
  4. XALATAN [Suspect]
     Indication: EYE PRURITUS
  5. XALATAN [Suspect]
     Indication: LACRIMATION INCREASED
  6. TIMOLOL [Concomitant]
     Indication: DEVELOPMENTAL GLAUCOMA
     Dosage: 1 GTT, 2X/DAY
     Route: 047
     Dates: start: 20040729

REACTIONS (5)
  - Lacrimation increased [Recovering/Resolving]
  - Eye pruritus [Recovering/Resolving]
  - Ocular hyperaemia [Recovering/Resolving]
  - Cough [Recovering/Resolving]
  - Lacrimation increased [Recovering/Resolving]
